FAERS Safety Report 8469391-9 (Version None)
Quarter: 2012Q2

REPORT INFORMATION
  Report Type: 
  Country: None (occurrence: None)
  Receive Date: 20120626
  Receipt Date: 20120620
  Transmission Date: 20120825
  Serious: Yes (Death, Other)
  Sender: FDA-Public Use
  Company Number: AU-PFIZER INC-2012122712

PATIENT
  Age: 38 Year
  Sex: Male
  Weight: 149 kg

DRUGS (14)
  1. ALPRAZOLAM [Suspect]
     Indication: AGITATION
  2. CLONAZEPAM [Suspect]
     Indication: BACK PAIN
  3. ZUCLOPENTHIXOL [Concomitant]
  4. ALPRAZOLAM [Suspect]
     Indication: BACK PAIN
     Dosage: UNK
  5. DIAZEPAM [Suspect]
     Indication: AGITATION
  6. ALPRAZOLAM [Suspect]
     Indication: ANXIETY
  7. MS CONTIN [Suspect]
     Indication: PAIN
     Dosage: 100 MG, 1X/DAY
  8. METOCLOPRAMIDE [Concomitant]
  9. CLONAZEPAM [Suspect]
     Indication: AGITATION
  10. CODEINE [Concomitant]
  11. DIAZEPAM [Suspect]
     Indication: BACK PAIN
  12. CLONAZEPAM [Suspect]
     Indication: ANXIETY
  13. MS CONTIN [Suspect]
     Dosage: 160 MG, 1X/DAY
  14. DIAZEPAM [Suspect]
     Indication: ANXIETY

REACTIONS (7)
  - CARDIOMEGALY [None]
  - TOXICITY TO VARIOUS AGENTS [None]
  - ARTERIOSCLEROSIS CORONARY ARTERY [None]
  - HEPATIC STEATOSIS [None]
  - DRUG ABUSE [None]
  - FATIGUE [None]
  - SNORING [None]
